FAERS Safety Report 6424724-X (Version None)
Quarter: 2009Q4

REPORT INFORMATION
  Report Type: 
  Country: None (occurrence: None)
  Receive Date: 20091103
  Receipt Date: 20091026
  Transmission Date: 20100525
  Serious: Yes (Hospitalization, Other)
  Sender: FDA-Public Use
  Company Number: US-ROXANE LABORATORIES, INC.-2009-RO-01099RO

PATIENT
  Age: 79 Year
  Sex: Female

DRUGS (2)
  1. LITHIUM CARBONATE [Suspect]
     Dosage: 500 MG
  2. LEVOTHYROXINE SODIUM [Suspect]
     Dosage: 150 MCG

REACTIONS (8)
  - APHASIA [None]
  - BLOOD THYROID STIMULATING HORMONE INCREASED [None]
  - DELIRIUM [None]
  - DRUG LEVEL BELOW THERAPEUTIC [None]
  - DRUG TOXICITY [None]
  - FALL [None]
  - MUCOSAL DRYNESS [None]
  - PYREXIA [None]
